FAERS Safety Report 8473230-X (Version None)
Quarter: 2012Q2

REPORT INFORMATION
  Report Type: 
  Country: None (occurrence: None)
  Receive Date: 20120627
  Receipt Date: 20120621
  Transmission Date: 20120825
  Serious: Yes (Hospitalization)
  Sender: FDA-Public Use
  Company Number: DE-ABBOTT-12P-062-0948221-00

PATIENT
  Age: 74 Year
  Sex: Male
  Weight: 70 kg

DRUGS (1)
  1. ZEMPLAR [Suspect]
     Indication: HYPOPARATHYROIDISM SECONDARY
     Route: 048
     Dates: start: 20100601

REACTIONS (4)
  - HYPERKALAEMIA [None]
  - GASTROOESOPHAGEAL REFLUX DISEASE [None]
  - HIATUS HERNIA [None]
  - GASTROINTESTINAL HAEMORRHAGE [None]
